FAERS Safety Report 22125774 (Version 1)
Quarter: 2023Q1

REPORT INFORMATION
  Report Type: Spontaneous
  Country: US (occurrence: US)
  Receive Date: 20230322
  Receipt Date: 20230322
  Transmission Date: 20230418
  Serious: No
  Sender: FDA-Public Use
  Company Number: US-PFIZER INC-PV202300053154

PATIENT
  Age: 76 Year
  Sex: Female

DRUGS (1)
  1. IBRANCE [Suspect]
     Active Substance: PALBOCICLIB
     Indication: Breast cancer female
     Dosage: 100 MG, CYCLIC (3X7 UD TAB 21)

REACTIONS (5)
  - Cough [Unknown]
  - Chills [Unknown]
  - Asthenia [Unknown]
  - Decreased appetite [Unknown]
  - Malaise [Unknown]
